FAERS Safety Report 19613565 (Version 1)
Quarter: 2021Q3

REPORT INFORMATION
  Report Type: Spontaneous
  Country: US (occurrence: US)
  Receive Date: 20210726
  Receipt Date: 20210726
  Transmission Date: 20211014
  Serious: No
  Sender: FDA-Public Use
  Company Number: None

PATIENT
  Age: 56 Year
  Sex: Male

DRUGS (1)
  1. CEFEPIME (CEFEPIME HCL 1GM/BAG INJ) [Suspect]
     Active Substance: CEFEPIME HYDROCHLORIDE
     Dosage: ?          OTHER ROUTE:IV?
     Dates: start: 20210319, end: 20210331

REACTIONS (1)
  - Agranulocytosis [None]

NARRATIVE: CASE EVENT DATE: 20210331
